FAERS Safety Report 22739548 (Version 4)
Quarter: 2023Q4

REPORT INFORMATION
  Report Type: Spontaneous
  Country: CA (occurrence: CA)
  Receive Date: 20230722
  Receipt Date: 20231009
  Transmission Date: 20240110
  Serious: Yes (Hospitalization, Other)
  Sender: FDA-Public Use
  Company Number: CA-CELLTRION INC.-2022CA020417

PATIENT

DRUGS (8)
  1. INFLECTRA [Suspect]
     Active Substance: INFLIXIMAB-DYYB
     Indication: Crohn^s disease
     Dosage: 283500 UG, 0, 2, 6 WEEKS, THEN EVERY 8 WEEKS
     Route: 041
     Dates: start: 20170821, end: 20171002
  2. INFLECTRA [Suspect]
     Active Substance: INFLIXIMAB-DYYB
     Dosage: 283500 UG, EVERY 4 WEEK
     Route: 041
     Dates: start: 20171031, end: 20171227
  3. INFLECTRA [Suspect]
     Active Substance: INFLIXIMAB-DYYB
     Dosage: 400 MG, EVERY 4 WEEK
     Route: 041
     Dates: start: 20180122, end: 20180416
  4. INFLECTRA [Suspect]
     Active Substance: INFLIXIMAB-DYYB
     Dosage: 500 MG, EVERY 4 WEEK
     Route: 041
     Dates: start: 20180515, end: 20180710
  5. INFLECTRA [Suspect]
     Active Substance: INFLIXIMAB-DYYB
     Dosage: 400 MG, 0, 2, 6 WEEKS, THEN EVERY 8 WEEKS
     Route: 041
     Dates: start: 20200626, end: 20230627
  6. INFLECTRA [Suspect]
     Active Substance: INFLIXIMAB-DYYB
     Dosage: 400 MG, 0, 2, 6 WEEKS, THEN EVERY 8 WEEKS (IN HOSPITAL)
     Route: 041
     Dates: start: 20230627
  7. INFLECTRA [Suspect]
     Active Substance: INFLIXIMAB-DYYB
     Dosage: 700 MG,Q 0, 2, 6 THEN EVERY 4 WEEKS
     Route: 042
     Dates: start: 20230728
  8. INFLECTRA [Suspect]
     Active Substance: INFLIXIMAB-DYYB
     Dosage: 700 MG,Q 0, 2, 6 THEN EVERY 4 WEEKS
     Route: 042
     Dates: start: 20230814

REACTIONS (9)
  - Large intestinal ulcer [Not Recovered/Not Resolved]
  - Large intestine erosion [Not Recovered/Not Resolved]
  - Condition aggravated [Unknown]
  - Condition aggravated [Recovering/Resolving]
  - Abdominal discomfort [Not Recovered/Not Resolved]
  - Influenza [Unknown]
  - Asthenia [Recovering/Resolving]
  - Off label use [Unknown]
  - Off label use [Unknown]

NARRATIVE: CASE EVENT DATE: 20170821
